FAERS Safety Report 6771682-4 (Version None)
Quarter: 2010Q2

REPORT INFORMATION
  Report Type: 
  Country: None (occurrence: None)
  Receive Date: 20100616
  Receipt Date: 20091208
  Transmission Date: 20101027
  Serious: No
  Sender: FDA-Public Use
  Company Number: US-ASTRAZENECA-2009SE30835

PATIENT
  Age: 623 Month
  Sex: Female
  Weight: 54.4 kg

DRUGS (1)
  1. ATACAND HCT [Suspect]
     Indication: HYPERTENSION
     Dosage: 1/2 OF 32 MG TABLET APPROX. DAILY
     Route: 048
     Dates: start: 20091123

REACTIONS (2)
  - DRUG INEFFECTIVE [None]
  - HYPERTENSION [None]
